FAERS Safety Report 26069596 (Version 1)
Quarter: 2025Q4

REPORT INFORMATION
  Report Type: Spontaneous
  Country: CN (occurrence: CN)
  Receive Date: 20251120
  Receipt Date: 20251120
  Transmission Date: 20260118
  Serious: Yes (Hospitalization, Other)
  Sender: DR REDDYS
  Company Number: None

PATIENT
  Age: 30 Year
  Sex: Female
  Weight: 49.0 kg

DRUGS (6)
  1. OLANZAPINE [Suspect]
     Active Substance: OLANZAPINE
     Indication: Schizophrenia
     Dosage: 5MG,BID?START DATE OF PRODUCT 05-OCT-2025
     Route: 048
     Dates: end: 20251012
  2. RISPERIDONE [Suspect]
     Active Substance: RISPERIDONE
     Indication: Schizophrenia
     Dosage: 1MG,BID
     Route: 048
     Dates: start: 20251003, end: 20251005
  3. RISPERIDONE [Suspect]
     Active Substance: RISPERIDONE
     Dosage: 4MG,BID
     Route: 048
     Dates: start: 20250902, end: 20250915
  4. RISPERIDONE [Suspect]
     Active Substance: RISPERIDONE
     Dosage: 2MG,BID
     Route: 048
     Dates: start: 20250929, end: 20251003
  5. RISPERIDONE [Suspect]
     Active Substance: RISPERIDONE
     Dosage: 3MG,BID
     Route: 048
     Dates: start: 20250915, end: 20250929
  6. TRIHEXYPHENIDYL HYDROCHLORIDE [Concomitant]
     Active Substance: TRIHEXYPHENIDYL HYDROCHLORIDE
     Indication: Extrapyramidal disorder
     Dosage: 2MG,BID
     Route: 048
     Dates: start: 20250911, end: 20251012

REACTIONS (2)
  - Macroprolactinaemia [Recovering/Resolving]
  - Sinus bradycardia [Recovering/Resolving]

NARRATIVE: CASE EVENT DATE: 20251004
